FAERS Safety Report 10434559 (Version 2)
Quarter: 2014Q3

REPORT INFORMATION
  Report Type: Spontaneous
  Country: US (occurrence: US)
  Receive Date: 20140905
  Receipt Date: 20140905
  Transmission Date: 20150326
  Serious: Yes (Other)
  Sender: FDA-Public Use
  Company Number: PHHY2014US104183

PATIENT
  Sex: Female

DRUGS (11)
  1. FOLIC ACID. [Suspect]
     Active Substance: FOLIC ACID
     Dosage: UNK UKN, UNK
  2. VITAMIN D [Concomitant]
     Active Substance: CHOLECALCIFEROL
     Dosage: 800 U, 1/DAY
  3. XOLAIR [Suspect]
     Active Substance: OMALIZUMAB
     Indication: ASTHMA
     Dosage: UNK UKN, UNK
     Dates: start: 20140812
  4. CLOBETASOL [Concomitant]
     Active Substance: CLOBETASOL
     Dosage: 0.5 %, UNK
  5. METOPROLOL [Concomitant]
     Active Substance: METOPROLOL
     Dosage: 50 MG, BID
  6. PROBIOTICS [Concomitant]
     Active Substance: PROBIOTICS NOS
     Dosage: UNK UKN, UNK
  7. PRENATAL VITAMINS [Concomitant]
     Active Substance: VITAMINS
     Dosage: UNK UKN, UNK
  8. ALLERGENS EXTRACT NOS [Suspect]
     Active Substance: ALLERGENIC EXTRACTS
     Dosage: UNK UKN, UNK
  9. VITAMIN B12 [Concomitant]
     Active Substance: CYANOCOBALAMIN
     Dosage: 2000 U, 1/DAY
  10. DULERA [Suspect]
     Active Substance: FORMOTEROL FUMARATE DIHYDRATE\MOMETASONE FUROATE
     Dosage: 2 DF, QD 200MCG/5
     Route: 055
  11. AMLODIPINE BESYLATE. [Concomitant]
     Active Substance: AMLODIPINE BESYLATE
     Dosage: 5 MG, 1/DAY

REACTIONS (4)
  - Urticaria [Unknown]
  - Swollen tongue [Unknown]
  - Nausea [Unknown]
  - Rash [Unknown]
